FAERS Safety Report 6286608-X (Version None)
Quarter: 2009Q3

REPORT INFORMATION
  Report Type: 
  Country: None (occurrence: None)
  Receive Date: 20090728
  Receipt Date: 20090716
  Transmission Date: 20100115
  Serious: Yes (Hospitalization, Other)
  Sender: FDA-Public Use
  Company Number: PHHY2009CH28421

PATIENT
  Age: 34 Year
  Sex: Female

DRUGS (2)
  1. ACLASTA [Suspect]
     Indication: OSTEOPOROSIS
     Dosage: ONE SINGLE INFUSION
     Dates: start: 20090701
  2. NEXIUM [Concomitant]
     Dosage: 40 MG/D
     Route: 048

REACTIONS (10)
  - C-REACTIVE PROTEIN INCREASED [None]
  - CHEST PAIN [None]
  - DYSPNOEA [None]
  - HYPOCALCAEMIA [None]
  - INFLUENZA LIKE ILLNESS [None]
  - LEFT VENTRICULAR FAILURE [None]
  - MUSCLE SPASMS [None]
  - PALLOR [None]
  - PULMONARY OEDEMA [None]
  - PYREXIA [None]
